FAERS Safety Report 13335412 (Version 1)
Quarter: 2017Q1

REPORT INFORMATION
  Report Type: Spontaneous
  Country: US (occurrence: US)
  Receive Date: 20170314
  Receipt Date: 20170314
  Transmission Date: 20170428
  Serious: No
  Sender: FDA-Public Use
  Company Number: US-GALDERMA-US17000329

PATIENT
  Age: 4 Decade
  Sex: Female

DRUGS (1)
  1. TRI-LUMA [Suspect]
     Active Substance: FLUOCINOLONE ACETONIDE\HYDROQUINONE\TRETINOIN
     Indication: PIGMENTATION DISORDER
     Dosage: ONCE DAILY FOR 2 WEEKS AND THEN DISCONTINUE FOR 1 WEEK AND THEN RESTART THE PRODUCT ON A REPEATING C
     Route: 061
     Dates: start: 201601, end: 201607

REACTIONS (2)
  - Intentional product use issue [Recovered/Resolved]
  - Condition aggravated [Recovering/Resolving]

NARRATIVE: CASE EVENT DATE: 201601
